FAERS Safety Report 20080799 (Version 3)
Quarter: 2022Q1

REPORT INFORMATION
  Report Type: Spontaneous
  Country: US (occurrence: US)
  Receive Date: 20211117
  Receipt Date: 20220222
  Transmission Date: 20220423
  Serious: No
  Sender: FDA-Public Use
  Company Number: US-ALKERMES INC.-ALK-2021-005815

PATIENT
  Age: 37 Year
  Sex: Male
  Weight: 104.31 kg

DRUGS (8)
  1. LYBALVI [Suspect]
     Active Substance: OLANZAPINE\SAMIDORPHAN L-MALATE
     Indication: Schizoaffective disorder
     Dosage: 10/10 MILLIGRAM, QD
     Dates: start: 20211107, end: 20211107
  2. LYBALVI [Suspect]
     Active Substance: OLANZAPINE\SAMIDORPHAN L-MALATE
     Dosage: 10/10 MILLIGRAM, QD
     Dates: start: 20211019, end: 20211019
  3. INVEGA SUSTENNA [Concomitant]
     Active Substance: PALIPERIDONE PALMITATE
     Dosage: 234 MILLIGRAM
  4. CAPLYTA [Concomitant]
     Active Substance: LUMATEPERONE
     Indication: Product used for unknown indication
     Dosage: UNK
     Dates: start: 20211119
  5. CAPLYTA [Concomitant]
     Active Substance: LUMATEPERONE
     Dosage: UNK
  6. DEPAKOTE [Concomitant]
     Active Substance: DIVALPROEX SODIUM
     Indication: Product used for unknown indication
     Route: 065
  7. METFORMIN [Concomitant]
     Active Substance: METFORMIN HYDROCHLORIDE
     Indication: Product used for unknown indication
     Route: 065
  8. ATORVASTATIN [Concomitant]
     Active Substance: ATORVASTATIN
     Indication: Product used for unknown indication
     Route: 065

REACTIONS (4)
  - Feeling abnormal [Recovered/Resolved]
  - Tachycardia [Recovered/Resolved]
  - Psychotic disorder [Not Recovered/Not Resolved]
  - Off label use [None]

NARRATIVE: CASE EVENT DATE: 20210101
